FAERS Safety Report 5107106-2 (Version None)
Quarter: 2006Q3

REPORT INFORMATION
  Report Type: 
  Country: None (occurrence: None)
  Receive Date: 20060913
  Receipt Date: 20060823
  Transmission Date: 20061208
  Serious: Yes (Other)
  Sender: FDA-Public Use
  Company Number: US200605005555

PATIENT
  Age: 54 Year
  Sex: Female

DRUGS (10)
  1. FORTEO [Suspect]
     Indication: OSTEOPOROSIS
     Dates: start: 20060401
  2. FORTEO [Suspect]
  3. CYMBALTA [Suspect]
     Indication: NEUROPATHY PERIPHERAL
     Dosage: SEE IMAGE
     Dates: start: 20060401
  4. CYMBALTA [Suspect]
     Indication: NEUROPATHY PERIPHERAL
     Dosage: SEE IMAGE
     Dates: start: 20060601
  5. FORTEO [Concomitant]
  6. FORTEO [Concomitant]
  7. FOSAMAX /ITA/ (ALENDRONATE SODIUM) [Concomitant]
  8. NEURONTIN [Concomitant]
  9. SKELAXIN [Concomitant]
  10. ESTRATEST H.S. [Concomitant]

REACTIONS (13)
  - ARTHRALGIA [None]
  - FATIGUE [None]
  - FOOT DEFORMITY [None]
  - GAIT DISTURBANCE [None]
  - MUSCLE SPASMS [None]
  - MYALGIA [None]
  - NECK PAIN [None]
  - NERVOUS SYSTEM DISORDER [None]
  - OEDEMA PERIPHERAL [None]
  - PAIN IN EXTREMITY [None]
  - PHARMACEUTICAL PRODUCT COMPLAINT [None]
  - REFUSAL OF TREATMENT BY PATIENT [None]
  - SUICIDAL IDEATION [None]
